FAERS Safety Report 13744905 (Version 3)
Quarter: 2017Q4

REPORT INFORMATION
  Report Type: Spontaneous
  Country: US (occurrence: US)
  Receive Date: 20170712
  Receipt Date: 20171004
  Transmission Date: 20180320
  Serious: No
  Sender: FDA-Public Use
  Company Number: US-PFIZER INC-2017301133

PATIENT
  Age: 67 Year
  Sex: Female
  Weight: 90.7 kg

DRUGS (1)
  1. XELJANZ XR [Suspect]
     Active Substance: TOFACITINIB CITRATE
     Indication: RHEUMATOID ARTHRITIS
     Dosage: 11 MG, DAILY
     Route: 048
     Dates: start: 20170413, end: 20170916

REACTIONS (5)
  - Laboratory test abnormal [Unknown]
  - Feeling of despair [Unknown]
  - Irritability [Unknown]
  - Myalgia [Unknown]
  - Depression [Unknown]
